FAERS Safety Report 18774911 (Version 1)
Quarter: 2021Q1

REPORT INFORMATION
  Report Type: Spontaneous
  Country: US (occurrence: US)
  Receive Date: 20210122
  Receipt Date: 20210122
  Transmission Date: 20210419
  Serious: Yes (Other)
  Sender: FDA-Public Use
  Company Number: US-PURDUE-USA-2020-0199143

PATIENT
  Sex: Male

DRUGS (2)
  1. OXYCODONE HCL TABLETS (RHODES 91?490) [Suspect]
     Active Substance: OXYCODONE HYDROCHLORIDE
     Indication: ACCIDENT AT WORK
     Dosage: UNK
     Route: 048
  2. ROXICODONE [Suspect]
     Active Substance: OXYCODONE HYDROCHLORIDE
     Indication: ACCIDENT AT WORK
     Dosage: UNK
     Route: 048

REACTIONS (6)
  - General physical condition abnormal [Unknown]
  - Fear [Unknown]
  - Renal impairment [Unknown]
  - General physical health deterioration [Unknown]
  - Drug dependence [Unknown]
  - Weight increased [Unknown]
